FAERS Safety Report 8162874-0 (Version None)
Quarter: 2012Q1

REPORT INFORMATION
  Report Type: 
  Country: None (occurrence: None)
  Receive Date: 20120224
  Receipt Date: 20120222
  Transmission Date: 20120608
  Serious: No
  Sender: FDA-Public Use
  Company Number: US-PFIZER INC-2012004926

PATIENT
  Sex: Female
  Weight: 113.83 kg

DRUGS (16)
  1. ZANAFLEX [Concomitant]
     Dosage: UNK
  2. AMBIEN [Concomitant]
     Dosage: UNK
  3. CHANTIX [Suspect]
     Indication: SMOKING CESSATION THERAPY
     Dosage: 0.5 MG, 1X/DAY
     Route: 048
     Dates: start: 20120102, end: 20120101
  4. CHANTIX [Suspect]
     Dosage: 0.5 MG, 2X/DAY
     Route: 048
     Dates: start: 20120101
  5. PRINZIDE [Concomitant]
     Indication: HYPERTENSION
     Dosage: UNK
  6. MOBIC [Concomitant]
     Dosage: UNK
  7. DURAGESIC-100 [Concomitant]
     Dosage: UNK
  8. OXYGEN [Concomitant]
     Dosage: UNK
  9. LYRICA [Concomitant]
     Dosage: UNK
  10. TOFRANIL-PM [Concomitant]
     Dosage: UNK
  11. LIPITOR [Concomitant]
     Dosage: UNK
  12. VISTARIL [Concomitant]
     Dosage: UNK
  13. ALBUTEROL [Concomitant]
     Indication: ASTHMA
     Dosage: UNK
  14. PERCOCET [Concomitant]
     Dosage: UNK
  15. TOPAMAX [Concomitant]
     Dosage: UNK
  16. NOVOLOG [Concomitant]
     Indication: DIABETES MELLITUS
     Dosage: UNK

REACTIONS (4)
  - ANXIETY [None]
  - DYSGEUSIA [None]
  - ABNORMAL DREAMS [None]
  - NIGHTMARE [None]
